FAERS Safety Report 7495281-4 (Version None)
Quarter: 2011Q2

REPORT INFORMATION
  Report Type: 
  Country: None (occurrence: None)
  Receive Date: 20110523
  Receipt Date: 20110518
  Transmission Date: 20111010
  Serious: Yes (Death, Life-Threatening, Hospitalization)
  Sender: FDA-Public Use
  Company Number: US-BRISTOL-MYERS SQUIBB COMPANY-15647340

PATIENT
  Age: 64 Year
  Sex: Male
  Weight: 86 kg

DRUGS (18)
  1. CETUXIMAB [Suspect]
     Indication: HEAD AND NECK CANCER
     Dosage: 04-APR-2011 DISCONTINUED FROM STUDY
     Route: 042
     Dates: start: 20110317, end: 20110317
  2. FLUOROURACIL [Suspect]
     Indication: HEAD AND NECK CANCER
     Dosage: DISCONTINUED FROM STUDY ON 04APR11
     Route: 042
     Dates: start: 20110317, end: 20110321
  3. PRILOSEC [Concomitant]
     Dosage: ONCE EVERY MORNING
     Route: 065
     Dates: start: 20030101
  4. CHLORPROMAZINE [Concomitant]
     Indication: HICCUPS
     Route: 065
  5. PRAVASTATIN SODIUM [Concomitant]
     Dosage: AT BED TIME
     Route: 065
     Dates: start: 19950101
  6. MILK OF MAGNESIA TAB [Concomitant]
     Route: 065
  7. CRESTOR [Concomitant]
     Route: 048
  8. HYDROCHLOROTHIAZIDE [Concomitant]
  9. ASPIRIN [Concomitant]
     Route: 065
  10. ACETAMINOPHEN [Concomitant]
     Route: 065
  11. CALCIUM ACETATE [Concomitant]
     Route: 048
  12. NORVASC [Concomitant]
     Route: 065
     Dates: start: 19950101
  13. DULCOLAX [Concomitant]
     Route: 054
  14. CISPLATIN [Suspect]
     Indication: HEAD AND NECK CANCER
     Dosage: DISCONTINUED FROM STUDY ON 04APR11
     Route: 042
     Dates: start: 20110317, end: 20110317
  15. DIOVAN HCT [Concomitant]
     Dosage: 1DF=320/25 UNIT NOT SPECIFIED.ONCE EVERY MORNING
     Route: 065
     Dates: start: 19950101
  16. METOPROLOL SUCCINATE [Concomitant]
     Dosage: EVERY MORNING
     Route: 065
     Dates: start: 19950101
  17. VITAMIN B COMPLEX CAP [Concomitant]
     Route: 065
  18. ALBUTEROL [Concomitant]

REACTIONS (4)
  - CARDIAC ARREST [None]
  - SEPSIS [None]
  - TUMOUR LYSIS SYNDROME [None]
  - RENAL FAILURE ACUTE [None]
